FAERS Safety Report 25189840 (Version 1)
Quarter: 2025Q2

REPORT INFORMATION
  Report Type: Spontaneous
  Country: PL (occurrence: PL)
  Receive Date: 20250411
  Receipt Date: 20250411
  Transmission Date: 20250716
  Serious: Yes (Other)
  Sender: MERCK SHARP AND DOHME
  Company Number: None

PATIENT
  Age: 15 Month
  Sex: Male

DRUGS (3)
  1. M-M-RVAXPRO [Suspect]
     Active Substance: MEASLES VIRUS STRAIN ENDERS^ ATTENUATED EDMONSTON LIVE ANTIGEN\MUMPS VIRUS STRAIN B LEVEL JERYL LYNN
     Dates: start: 20200512
  2. M-M-RVAXPRO [Suspect]
     Active Substance: MEASLES VIRUS STRAIN ENDERS^ ATTENUATED EDMONSTON LIVE ANTIGEN\MUMPS VIRUS STRAIN B LEVEL JERYL LYNN
     Dates: start: 20200512
  3. SYNFLORIX [Suspect]
     Active Substance: PNEUMOCOCCAL VACCINE POLYVALENT
     Dates: start: 20200512

REACTIONS (8)
  - Lymphadenopathy [Not Recovered/Not Resolved]
  - Tearfulness [Recovered/Resolved]
  - Rash [Recovered/Resolved]
  - Pyrexia [Recovered/Resolved]
  - Vomiting [Recovered/Resolved]
  - Injected limb mobility decreased [Recovered/Resolved]
  - Anger [Recovered/Resolved]
  - Decreased appetite [Recovered/Resolved]

NARRATIVE: CASE EVENT DATE: 20200512
